FAERS Safety Report 11777449 (Version 3)
Quarter: 2016Q2

REPORT INFORMATION
  Report Type: Report from Study
  Country: ES (occurrence: ES)
  Receive Date: 20151125
  Receipt Date: 20160407
  Transmission Date: 20160815
  Serious: Yes (Death, Hospitalization, Other)
  Sender: FDA-Public Use
  Company Number: ES-SA-2015SA190249

PATIENT
  Age: 85 Year
  Sex: Female

DRUGS (11)
  1. DOCETAXEL. [Suspect]
     Active Substance: DOCETAXEL
     Indication: HER-2 POSITIVE BREAST CANCER
     Route: 042
     Dates: start: 20121127, end: 20130312
  2. PERTUZUMAB [Suspect]
     Active Substance: PERTUZUMAB
     Indication: HER-2 POSITIVE BREAST CANCER
     Dosage: MAINTENANCE DOSE
     Route: 042
     Dates: start: 20121218, end: 20150608
  3. TRASTUZUMAB [Suspect]
     Active Substance: TRASTUZUMAB
     Indication: HER-2 POSITIVE BREAST CANCER
     Dosage: 8MG/KG?LOADING DOSE
     Route: 042
     Dates: start: 20121127, end: 20121127
  4. PSYLLIUM [Concomitant]
     Active Substance: PLANTAGO SEED
  5. SERC [Concomitant]
     Active Substance: BETAHISTINE HYDROCHLORIDE
     Dates: start: 199601
  6. BEGLAN [Concomitant]
     Dosage: DOSE: 1 (UNITS NOT REPORTED)
  7. INALACOR [Concomitant]
     Dosage: DOSE: 1 (UNITS NOT REPORTED)
  8. STILNOX [Concomitant]
     Active Substance: ZOLPIDEM TARTRATE
     Indication: SLEEP DISORDER
     Dates: start: 20121116
  9. PERTUZUMAB [Suspect]
     Active Substance: PERTUZUMAB
     Indication: HER-2 POSITIVE BREAST CANCER
     Dosage: LOADING DOSE
     Route: 042
     Dates: start: 20121127, end: 20121127
  10. TRASTUZUMAB [Suspect]
     Active Substance: TRASTUZUMAB
     Indication: HER-2 POSITIVE BREAST CANCER
     Dosage: 6MG/KG?MAINTENANCE DOSE
     Route: 042
     Dates: start: 20121218, end: 20150608
  11. FENTANILO [Concomitant]
     Active Substance: FENTANYL
     Dosage: 1/72 H

REACTIONS (3)
  - Cardiac failure congestive [Fatal]
  - Dyspnoea [Recovered/Resolved with Sequelae]
  - Cardiac failure [Recovered/Resolved with Sequelae]

NARRATIVE: CASE EVENT DATE: 20150522
